FAERS Safety Report 8493104 (Version 2)
Quarter: 2013Q1

REPORT INFORMATION
  Report Type: Report from Study
  Country: BR (occurrence: BR)
  Receive Date: 20120404
  Receipt Date: 20130122
  Transmission Date: 20140127
  Serious: Yes (Death, Other)
  Sender: FDA-Public Use
  Company Number: BR-BAYER-2012-031782

PATIENT
  Age: 38 Year
  Sex: Male
  Weight: 50 kg

DRUGS (5)
  1. NEXAVAR [Suspect]
     Indication: HEPATIC CANCER
     Dosage: 400 MG, BID
     Route: 048
     Dates: start: 201108, end: 20120824
  2. PACO [Concomitant]
     Indication: HEPATIC PAIN
     Dosage: 1 DF, BID
     Route: 048
     Dates: start: 201108
  3. PACO [Concomitant]
     Indication: ABDOMINAL PAIN
  4. BUSCOPAN [Concomitant]
     Indication: HEPATIC PAIN
     Dosage: 1 DF, BID
     Route: 048
     Dates: start: 201108
  5. BUSCOPAN [Concomitant]
     Indication: ABDOMINAL PAIN

REACTIONS (9)
  - Dysentery [Not Recovered/Not Resolved]
  - Feeding disorder [Not Recovered/Not Resolved]
  - Mood altered [Not Recovered/Not Resolved]
  - Restlessness [Not Recovered/Not Resolved]
  - Impatience [Not Recovered/Not Resolved]
  - Irritability [Not Recovered/Not Resolved]
  - Weight decreased [Not Recovered/Not Resolved]
  - Nausea [Not Recovered/Not Resolved]
  - Hepatic cancer [Fatal]
